FAERS Safety Report 6684912-4 (Version None)
Quarter: 2010Q2

REPORT INFORMATION
  Report Type: 
  Country: None (occurrence: None)
  Receive Date: 20100416
  Receipt Date: 20100407
  Transmission Date: 20101027
  Serious: Yes (Life-Threatening, Other)
  Sender: FDA-Public Use
  Company Number: JP-JNJFOC-20090600657

PATIENT
  Sex: Male
  Weight: 48 kg

DRUGS (15)
  1. REMICADE [Suspect]
     Indication: CROHN'S DISEASE
     Route: 042
  2. REMICADE [Suspect]
     Route: 042
  3. REMICADE [Suspect]
     Dosage: 4 INFUSIONS
     Route: 042
  4. REMICADE [Suspect]
     Dosage: 7TH INFUSION
     Route: 042
  5. IMURAN [Suspect]
     Indication: CROHN'S DISEASE
     Route: 048
  6. IMURAN [Suspect]
     Route: 048
  7. LOPEMIN [Concomitant]
     Route: 048
  8. PENTASA [Concomitant]
     Route: 048
  9. PENTASA [Concomitant]
     Route: 048
  10. RACOL [Concomitant]
     Route: 048
  11. ULCERLMIN [Concomitant]
     Route: 048
  12. TAKEPRON [Concomitant]
     Route: 048
  13. BIOFERMIN [Concomitant]
     Route: 048
  14. ALBUMIN TANNATE [Concomitant]
     Route: 048
  15. PROMAC (POLAPREZINC) [Concomitant]

REACTIONS (8)
  - ANASTOMOTIC COMPLICATION [None]
  - ARTHRITIS [None]
  - CROHN'S DISEASE [None]
  - HEPATIC NEOPLASM MALIGNANT [None]
  - LIVER CARCINOMA RUPTURED [None]
  - NEOPLASM [None]
  - OPERATIVE HAEMORRHAGE [None]
  - PERITONITIS [None]
